FAERS Safety Report 13790048 (Version 1)
Quarter: 2017Q3

REPORT INFORMATION
  Report Type: Spontaneous
  Country: JP (occurrence: JP)
  Receive Date: 20170725
  Receipt Date: 20170725
  Transmission Date: 20171127
  Serious: Yes (Life-Threatening)
  Sender: FDA-Public Use
  Company Number: JP-TEVA-2017-JP-002312J

PATIENT
  Age: 58 Year
  Sex: Female

DRUGS (27)
  1. CYMBALTA [Suspect]
     Active Substance: DULOXETINE HYDROCHLORIDE
     Indication: DEPRESSION
     Dosage: 60 MILLIGRAM DAILY;
     Route: 048
     Dates: start: 20130611, end: 20140427
  2. CYMBALTA [Suspect]
     Active Substance: DULOXETINE HYDROCHLORIDE
     Dosage: 20 MILLIGRAM DAILY;
     Route: 048
     Dates: start: 20170114
  3. NEUROTROPIN [Suspect]
     Active Substance: NEUROTROPIN
     Indication: PRODUCT USED FOR UNKNOWN INDICATION
     Dosage: 4 DOSAGE FORMS DAILY;
     Route: 048
     Dates: start: 20140308
  4. REBAMIPIDE TABLET 100MG [Suspect]
     Active Substance: REBAMIPIDE
     Indication: PRODUCT USED FOR UNKNOWN INDICATION
     Dosage: 1 DOSAGE FORMS DAILY; AS NEEDED
     Route: 048
     Dates: start: 20130717, end: 20140307
  5. LYRICA [Suspect]
     Active Substance: PREGABALIN
     Indication: FIBROMYALGIA
     Dosage: 75 MILLIGRAM DAILY; IN THE MORNING
     Route: 048
     Dates: start: 20140107, end: 20140114
  6. LYRICA [Suspect]
     Active Substance: PREGABALIN
     Dosage: 275 MILLIGRAM DAILY; 125MG IN THE MORNING AND 150MG IN THE EVENING
     Route: 048
     Dates: start: 20150219, end: 20160307
  7. LYRICA [Suspect]
     Active Substance: PREGABALIN
     Dosage: 275 MILLIGRAM DAILY; 125MG IN THE MORNING AND 150MG IN THE EVENING
     Route: 048
     Dates: start: 20160405, end: 20170118
  8. LYRICA [Suspect]
     Active Substance: PREGABALIN
     Dosage: 225 MILLIGRAM DAILY; 75MG IN THE MORNING AND 150MG IN THE EVENING
     Route: 048
     Dates: start: 20140124, end: 20140131
  9. CYMBALTA [Suspect]
     Active Substance: DULOXETINE HYDROCHLORIDE
     Dosage: 40 MILLIGRAM DAILY;
     Route: 048
     Dates: start: 20140428
  10. LANSOPRAZOLE OD [Suspect]
     Active Substance: LANSOPRAZOLE
     Indication: PRODUCT USED FOR UNKNOWN INDICATION
     Dosage: 15 MILLIGRAM DAILY;
     Route: 048
     Dates: start: 20131105
  11. ROZEREM [Suspect]
     Active Substance: RAMELTEON
     Indication: PRODUCT USED FOR UNKNOWN INDICATION
     Dosage: 8 MILLIGRAM DAILY; BEFORE BEDTIME
     Route: 048
     Dates: start: 20130611, end: 20140427
  12. MYSLEE [Suspect]
     Active Substance: ZOLPIDEM TARTRATE
     Indication: PRODUCT USED FOR UNKNOWN INDICATION
     Dosage: 10 MILLIGRAM DAILY;
     Route: 048
     Dates: start: 20140428
  13. MYSLEE [Suspect]
     Active Substance: ZOLPIDEM TARTRATE
     Route: 048
     Dates: start: 20170114
  14. WASSER V [Suspect]
     Active Substance: ASCORBIC ACID\VITAMIN B COMPLEX
     Indication: PRODUCT USED FOR UNKNOWN INDICATION
     Dosage: 4 GRAM DAILY;
     Route: 048
     Dates: start: 20150718, end: 20160420
  15. LYRICA [Suspect]
     Active Substance: PREGABALIN
     Dosage: 150 MILLIGRAM DAILY; EACH IN THE MORNING AND EVENING
     Route: 048
     Dates: start: 20140115, end: 20140123
  16. LYRICA [Suspect]
     Active Substance: PREGABALIN
     Dosage: 150 MILLIGRAM DAILY; EACH IN THE MORNING AND EVENING
     Route: 048
     Dates: start: 20140408, end: 20150218
  17. LOXONIN [Suspect]
     Active Substance: LOXOPROFEN SODIUM
     Dosage: 3 DOSAGE FORMS DAILY;
     Route: 048
     Dates: start: 20140308
  18. LYRICA [Suspect]
     Active Substance: PREGABALIN
     Dosage: 150 MILLIGRAM DAILY;
     Route: 048
     Dates: start: 20140201, end: 20140307
  19. MOHRUS [Suspect]
     Active Substance: KETOPROFEN
     Indication: PRODUCT USED FOR UNKNOWN INDICATION
     Dosage: 40 MILLIGRAM DAILY;
     Route: 065
     Dates: start: 20150718
  20. EURODIN 1MG. TABLETS [Suspect]
     Active Substance: ESTAZOLAM
     Indication: PRODUCT USED FOR UNKNOWN INDICATION
     Dosage: 2 MILLIGRAM DAILY; BEFORE BEDTIME
     Route: 048
     Dates: start: 20140428
  21. ROZEREM [Suspect]
     Active Substance: RAMELTEON
     Dosage: 8 MILLIGRAM DAILY;
     Route: 048
     Dates: start: 20140428
  22. LYRICA [Suspect]
     Active Substance: PREGABALIN
     Dosage: 200 MILLIGRAM DAILY; 50MG IN THE MORNING AND 150MG IN THE EVENING
     Route: 048
     Dates: start: 20160308, end: 20160404
  23. REBAMIPIDE TABLET 100MG [Suspect]
     Active Substance: REBAMIPIDE
     Dosage: 3 DOSAGE FORMS DAILY;
     Dates: start: 20140308
  24. LYRICA [Suspect]
     Active Substance: PREGABALIN
     Dosage: 225 MILLIGRAM DAILY; 75MG IN THE MORNING AND 150MG IN THE EVENING
     Route: 048
     Dates: start: 20140308, end: 20140407
  25. LOXONIN [Suspect]
     Active Substance: LOXOPROFEN SODIUM
     Indication: PRODUCT USED FOR UNKNOWN INDICATION
     Dosage: 1 DOSAGE FORMS DAILY;
     Route: 048
     Dates: start: 20130717, end: 20140307
  26. MOHRUS [Suspect]
     Active Substance: KETOPROFEN
     Dosage: 40 MILLIGRAM DAILY;
     Route: 065
     Dates: start: 20160308
  27. MECOBALAMIN [Suspect]
     Active Substance: METHYLCOBALAMIN
     Indication: PRODUCT USED FOR UNKNOWN INDICATION
     Dosage: 3 DOSAGE FORMS DAILY;
     Route: 048
     Dates: start: 20151111, end: 20160209

REACTIONS (17)
  - Ascites [Recovered/Resolved]
  - Rhinorrhoea [Unknown]
  - Dizziness [Unknown]
  - Alanine aminotransferase increased [Recovered/Resolved]
  - Abdominal distension [Recovered/Resolved]
  - Cough [Unknown]
  - Hepatosplenomegaly [Unknown]
  - Hepatic function abnormal [Recovered/Resolved]
  - Aspartate aminotransferase increased [Recovered/Resolved]
  - Viral upper respiratory tract infection [Unknown]
  - Weight decreased [Recovered/Resolved]
  - Jaundice [Recovered/Resolved]
  - Diarrhoea [Unknown]
  - Productive cough [Unknown]
  - Hepatic steatosis [Unknown]
  - Vomiting [Unknown]
  - Asthenia [Unknown]

NARRATIVE: CASE EVENT DATE: 20160224
